FAERS Safety Report 6611190-4 (Version None)
Quarter: 2010Q1

REPORT INFORMATION
  Report Type: 
  Country: None (occurrence: None)
  Receive Date: 20100226
  Receipt Date: 20100226
  Transmission Date: 20100710
  Serious: Yes (Other)
  Sender: FDA-Public Use
  Company Number: None

PATIENT
  Sex: Female
  Weight: 121.1104 kg

DRUGS (9)
  1. GABAPENTIN [Suspect]
     Indication: DIABETIC NEUROPATHY
     Dosage: 300MG PO TID
     Route: 048
     Dates: start: 20100105, end: 20100115
  2. HUMULIN R [Concomitant]
  3. GLYBURIDE [Concomitant]
  4. CARAFATE [Concomitant]
  5. PROTONIX [Concomitant]
  6. COMBIVENT [Concomitant]
  7. KADIAN [Concomitant]
  8. AZMACORT [Concomitant]
  9. PROAIR HFA [Concomitant]

REACTIONS (4)
  - ABDOMINAL DISCOMFORT [None]
  - FEELING ABNORMAL [None]
  - PRODUCT SUBSTITUTION ISSUE [None]
  - PRURITUS [None]
